FAERS Safety Report 11063476 (Version 1)
Quarter: 2015Q2

REPORT INFORMATION
  Report Type: Spontaneous
  Country: US (occurrence: US)
  Receive Date: 20150424
  Receipt Date: 20150424
  Transmission Date: 20150821
  Serious: No
  Sender: FDA-Public Use
  Company Number: US-ALKERMES INC.-ALK-2014-003696

PATIENT

DRUGS (3)
  1. UNSPECIFIED MEDICATION [Concomitant]
     Active Substance: UNSPECIFIED INGREDIENT
     Indication: ATTENTION DEFICIT/HYPERACTIVITY DISORDER
     Dosage: UNK
     Dates: start: 201411
  2. VIVITROL [Suspect]
     Active Substance: NALTREXONE
     Dosage: 380 MG, UNK
     Route: 030
     Dates: start: 20150108
  3. VIVITROL [Suspect]
     Active Substance: NALTREXONE
     Indication: DRUG DEPENDENCE
     Dosage: 380 MG, QMO
     Route: 030
     Dates: start: 201402, end: 201409

REACTIONS (12)
  - Gynaecomastia [Recovered/Resolved]
  - Influenza like illness [Recovered/Resolved]
  - Fatigue [Unknown]
  - Breast discharge [Not Recovered/Not Resolved]
  - Drug dependence [Not Recovered/Not Resolved]
  - Nausea [Recovered/Resolved]
  - Needle issue [Recovered/Resolved]
  - Malaise [Recovered/Resolved]
  - Syringe issue [Recovered/Resolved]
  - Hyperaesthesia [Not Recovered/Not Resolved]
  - Procedural pain [Not Recovered/Not Resolved]
  - Toothache [Unknown]

NARRATIVE: CASE EVENT DATE: 2014
